FAERS Safety Report 8360682-9 (Version None)
Quarter: 2012Q2

REPORT INFORMATION
  Report Type: 
  Country: None (occurrence: None)
  Receive Date: 20120515
  Receipt Date: 20120504
  Transmission Date: 20120825
  Serious: Yes (Other)
  Sender: FDA-Public Use
  Company Number: US-ACTELION-A-US2011-55013

PATIENT

DRUGS (3)
  1. TRACLEER [Suspect]
     Indication: PULMONARY ARTERIAL HYPERTENSION
     Dosage: UNK
     Route: 048
     Dates: start: 20081107
  2. COUMADIN [Concomitant]
  3. CALCIUM CHANNEL BLOCKERS [Concomitant]

REACTIONS (12)
  - NASOPHARYNGITIS [None]
  - LIVER FUNCTION TEST ABNORMAL [None]
  - PALPITATIONS [None]
  - FLUID RETENTION [None]
  - SYNCOPE [None]
  - ATRIAL FIBRILLATION [None]
  - BRADYCARDIA [None]
  - DIZZINESS [None]
  - CARDIAC MURMUR [None]
  - ARRHYTHMIA [None]
  - ALANINE AMINOTRANSFERASE INCREASED [None]
  - CARDIAC PACEMAKER INSERTION [None]
